FAERS Safety Report 4737831-4 (Version None)
Quarter: 2005Q3

REPORT INFORMATION
  Report Type: 
  Country: None (occurrence: None)
  Receive Date: 20050803
  Receipt Date: 20050712
  Transmission Date: 20060218
  Serious: Yes (Other)
  Sender: FDA-Public Use
  Company Number: USA050290519

PATIENT
  Age: 45 Year
  Sex: Female

DRUGS (6)
  1. STRATTERA [Suspect]
     Dosage: 60 MG DAY
  2. APO-METOPROLOL (METOPROLOL TARTRATE) [Concomitant]
  3. ORAL CONTRACEPTIVE NOS [Concomitant]
  4. ESTROSTEP [Concomitant]
  5. ESTROGEN W/MEDROXYPROGESTERON [Concomitant]
  6. PREMARIN               /00073001/ (ESTROGENS CONJUGATED) [Concomitant]

REACTIONS (9)
  - BLOOD PRESSURE INCREASED [None]
  - CAROTID ARTERY DISSECTION [None]
  - CEREBROVASCULAR ACCIDENT [None]
  - COGNITIVE DISORDER [None]
  - HEADACHE [None]
  - HYPOAESTHESIA [None]
  - PARAESTHESIA [None]
  - SPEECH DISORDER [None]
  - THINKING ABNORMAL [None]
